FAERS Safety Report 6653880-3 (Version None)
Quarter: 2010Q1

REPORT INFORMATION
  Report Type: 
  Country: None (occurrence: None)
  Receive Date: 20100326
  Receipt Date: 20100315
  Transmission Date: 20100710
  Serious: Yes (Other)
  Sender: FDA-Public Use
  Company Number: DE-PFIZER INC-2009200475

PATIENT
  Age: 68 Year
  Sex: Female
  Weight: 77 kg

DRUGS (4)
  1. AROMASIN [Suspect]
     Indication: BREAST CANCER RECURRENT
     Dosage: 25 MG, 1X/DAY
     Route: 048
     Dates: start: 20090204, end: 20100101
  2. IBANDRONIC ACID [Concomitant]
     Indication: METASTASES TO BONE
     Dosage: UNK
     Route: 042
  3. CARBOPLATIN [Concomitant]
     Dosage: UNK
  4. GEMZAR [Concomitant]
     Dosage: UNK

REACTIONS (9)
  - ARTHRALGIA [None]
  - CARPAL TUNNEL SYNDROME [None]
  - DEPRESSED MOOD [None]
  - HEPATIC ENZYME INCREASED [None]
  - HYPERHIDROSIS [None]
  - METASTASES TO LIVER [None]
  - OEDEMA PERIPHERAL [None]
  - PARAESTHESIA [None]
  - THROMBOSIS IN DEVICE [None]
